FAERS Safety Report 7030695-8 (Version None)
Quarter: 2010Q4

REPORT INFORMATION
  Report Type: 
  Country: None (occurrence: None)
  Receive Date: 20101001
  Receipt Date: 20100915
  Transmission Date: 20110411
  Serious: Yes (Other)
  Sender: FDA-Public Use
  Company Number: UTC-001403

PATIENT
  Age: 69 Year
  Sex: Female
  Weight: 114.8 kg

DRUGS (7)
  1. TYVASO [Suspect]
     Indication: PULMONARY ARTERIAL HYPERTENSION
     Dosage: 264 MCG (66 MCG, 4 IN 1 D), INHALATION
     Route: 055
     Dates: start: 20100831
  2. LASIX [Concomitant]
  3. POTASSIUM (POTASSIUM) [Concomitant]
  4. COUMADIN [Concomitant]
  5. CLARITIN [Concomitant]
  6. VITAMIN E [Concomitant]
  7. MULTIVITAMIN (MULTIVITAMIN) [Concomitant]

REACTIONS (3)
  - CHOKING [None]
  - COUGH [None]
  - DYSPNOEA [None]
